FAERS Safety Report 5608179-0 (Version None)
Quarter: 2008Q1

REPORT INFORMATION
  Report Type: 
  Country: None (occurrence: None)
  Receive Date: 20080130
  Receipt Date: 20080118
  Transmission Date: 20080703
  Serious: Yes (Hospitalization)
  Sender: FDA-Public Use
  Company Number: GB-ROCHE-542333

PATIENT
  Age: 55 Year
  Sex: Female
  Weight: 113.4 kg

DRUGS (2)
  1. ORLISTAT [Suspect]
     Indication: OBESITY
     Route: 048
     Dates: start: 20070905
  2. CO-CODAMOL [Concomitant]
     Indication: PAIN
     Route: 048

REACTIONS (1)
  - JOINT INJURY [None]
